FAERS Safety Report 5924444-1 (Version None)
Quarter: 2008Q4

REPORT INFORMATION
  Report Type: 
  Country: None (occurrence: None)
  Receive Date: 20081020
  Receipt Date: 20081014
  Transmission Date: 20090506
  Serious: Yes (Hospitalization, Other)
  Sender: FDA-Public Use
  Company Number: US-ROXANE LABORATORIES, INC.-2008-RO-00127RO

PATIENT
  Age: 6 Year
  Sex: Female

DRUGS (4)
  1. FLUTICASONE PROPIONATE [Suspect]
     Indication: ASTHMA
     Dosage: 880MCG
  2. FLUTICASONE PROPIONATE [Suspect]
     Dosage: 440MCG
  3. BECLOMETHASONE DIPROPIONATE [Concomitant]
     Dosage: 160MCG
  4. CORTICOSTEROIDS [Concomitant]
     Route: 048

REACTIONS (8)
  - ADRENAL INSUFFICIENCY [None]
  - ADRENAL SUPPRESSION [None]
  - CUSHINGOID [None]
  - HYPOGLYCAEMIC SEIZURE [None]
  - LETHARGY [None]
  - PNEUMONIA [None]
  - STEROID WITHDRAWAL SYNDROME [None]
  - WEIGHT INCREASED [None]
